FAERS Safety Report 20874709 (Version 3)
Quarter: 2022Q4

REPORT INFORMATION
  Report Type: Report from Study
  Country: US (occurrence: US)
  Receive Date: 20220525
  Receipt Date: 20221206
  Transmission Date: 20230113
  Serious: Yes (Death)
  Sender: FDA-Public Use
  Company Number: US-ABBVIE-22K-163-4410022-00

PATIENT
  Sex: Male
  Weight: 93 kg

DRUGS (2)
  1. HUMIRA [Suspect]
     Active Substance: ADALIMUMAB
     Indication: Crohn^s disease
     Dosage: CITRATE FREE, DAY 01
     Route: 058
  2. HUMIRA [Suspect]
     Active Substance: ADALIMUMAB
     Dosage: CITRATE FREE, DAY 15
     Route: 058

REACTIONS (5)
  - Brain injury [Fatal]
  - Pneumonia escherichia [Fatal]
  - Diverticulitis [Fatal]
  - Gastrointestinal haemorrhage [Fatal]
  - Blood loss anaemia [Fatal]
